FAERS Safety Report 6527321-0 (Version None)
Quarter: 2010Q1

REPORT INFORMATION
  Report Type: 
  Country: None (occurrence: None)
  Receive Date: 20100104
  Receipt Date: 20100104
  Transmission Date: 20100710
  Serious: Yes (Life-Threatening, Hospitalization)
  Sender: FDA-Public Use
  Company Number: None

PATIENT
  Age: 49 Year
  Sex: Male
  Weight: 86.637 kg

DRUGS (12)
  1. ISENTRESS [Suspect]
     Indication: ACQUIRED IMMUNODEFICIENCY SYNDROME
     Dosage: 400 MG BID PO
     Route: 048
     Dates: start: 20080805, end: 20091224
  2. ISENTRESS [Suspect]
     Indication: HIV INFECTION
     Dosage: 400 MG BID PO
     Route: 048
     Dates: start: 20080805, end: 20091224
  3. REYATAZ [Suspect]
     Indication: ACQUIRED IMMUNODEFICIENCY SYNDROME
     Dosage: TWO CAPSULE QD PO
     Route: 048
     Dates: start: 20080805, end: 20091224
  4. REYATAZ [Suspect]
     Indication: HIV INFECTION
     Dosage: TWO CAPSULE QD PO
     Route: 048
     Dates: start: 20080805, end: 20091224
  5. LIPITOR [Concomitant]
  6. GLUCOTROL [Suspect]
  7. PARLODEL [Concomitant]
  8. MULTI-VITAMIN [Concomitant]
  9. METFORMIN HYDROCHLORIDE [Concomitant]
  10. VICODIN [Concomitant]
  11. RAMIPRIL [Concomitant]
  12. NIASPAN [Concomitant]

REACTIONS (4)
  - CHILLS [None]
  - DEHYDRATION [None]
  - DIARRHOEA [None]
  - PYREXIA [None]
